FAERS Safety Report 23097046 (Version 1)
Quarter: 2023Q4

REPORT INFORMATION
  Report Type: Report from Study
  Country: US (occurrence: US)
  Receive Date: 20231023
  Receipt Date: 20231023
  Transmission Date: 20240110
  Serious: Yes (Hospitalization)
  Sender: FDA-Public Use
  Company Number: US-Accord-386090

PATIENT
  Age: 58 Year
  Sex: Female
  Weight: 92.9 kg

DRUGS (1)
  1. CLOZAPINE [Suspect]
     Active Substance: CLOZAPINE
     Indication: Product used for unknown indication
     Dosage: 100MG BY MOUTH ONCE DAILY PRIOR TO HOSPITALIZATION
     Route: 048

REACTIONS (4)
  - Sepsis [Unknown]
  - Urinary tract infection [Unknown]
  - Hypotension [Unknown]
  - Product dose omission issue [Unknown]
